FAERS Safety Report 22357482 (Version 1)
Quarter: 2023Q2

REPORT INFORMATION
  Report Type: Spontaneous
  Country: JP (occurrence: JP)
  Receive Date: 20230524
  Receipt Date: 20230524
  Transmission Date: 20230722
  Serious: Yes (Hospitalization)
  Sender: FDA-Public Use
  Company Number: JP-VKT-000013

PATIENT
  Sex: Male

DRUGS (12)
  1. LEVETIRACETAM [Suspect]
     Active Substance: LEVETIRACETAM
     Indication: Pneumonia aspiration
     Route: 065
  2. LEVETIRACETAM [Suspect]
     Active Substance: LEVETIRACETAM
     Indication: Urinary tract infection
     Route: 065
  3. ACYCLOVIR [Suspect]
     Active Substance: ACYCLOVIR
     Indication: Pneumonia aspiration
     Route: 065
  4. ACYCLOVIR [Suspect]
     Active Substance: ACYCLOVIR
     Indication: Urinary tract infection
     Route: 065
  5. PHENYTOIN [Suspect]
     Active Substance: PHENYTOIN
     Indication: Pneumonia aspiration
     Route: 065
  6. PHENYTOIN [Suspect]
     Active Substance: PHENYTOIN
     Indication: Urinary tract infection
     Route: 065
  7. PIPERACILLIN SODIUM\TAZOBACTAM SODIUM [Suspect]
     Active Substance: PIPERACILLIN SODIUM\TAZOBACTAM SODIUM
     Indication: Pneumonia aspiration
     Route: 065
  8. PIPERACILLIN SODIUM\TAZOBACTAM SODIUM [Suspect]
     Active Substance: PIPERACILLIN SODIUM\TAZOBACTAM SODIUM
     Indication: Urinary tract infection
     Route: 065
  9. AMPICILLIN SODIUM\SULBACTAM SODIUM [Suspect]
     Active Substance: AMPICILLIN SODIUM\SULBACTAM SODIUM
     Indication: Urinary tract infection
     Route: 065
  10. AMPICILLIN SODIUM\SULBACTAM SODIUM [Suspect]
     Active Substance: AMPICILLIN SODIUM\SULBACTAM SODIUM
     Indication: Pneumonia aspiration
     Route: 065
  11. VANCOMYCIN [Suspect]
     Active Substance: VANCOMYCIN
     Indication: Pneumonia aspiration
     Route: 065
  12. VANCOMYCIN [Suspect]
     Active Substance: VANCOMYCIN
     Indication: Urinary tract infection
     Route: 065

REACTIONS (3)
  - Multiple organ dysfunction syndrome [Recovered/Resolved]
  - Drug reaction with eosinophilia and systemic symptoms [Recovered/Resolved]
  - Product use in unapproved indication [Unknown]
